FAERS Safety Report 6296966-8 (Version None)
Quarter: 2009Q3

REPORT INFORMATION
  Report Type: 
  Country: None (occurrence: None)
  Receive Date: 20090804
  Receipt Date: 20090724
  Transmission Date: 20100115
  Serious: Yes (Other)
  Sender: FDA-Public Use
  Company Number: GB-ELI_LILLY_AND_COMPANY-GB200904003303

PATIENT
  Sex: Male

DRUGS (3)
  1. STRATTERA [Suspect]
     Indication: ATTENTION DEFICIT/HYPERACTIVITY DISORDER
     Dosage: UNK INITIAL DOSE
     Route: 065
  2. STRATTERA [Suspect]
     Dosage: 50 MG, DAILY (1/D)
     Route: 065
  3. STRATTERA [Suspect]
     Dosage: 25 MG X 2, UNKNOWN
     Route: 065

REACTIONS (8)
  - DECREASED APPETITE [None]
  - DISCOMFORT [None]
  - HALLUCINATION, AUDITORY [None]
  - HALLUCINATION, VISUAL [None]
  - MALAISE [None]
  - SUICIDAL IDEATION [None]
  - SYNCOPE [None]
  - WEIGHT DECREASED [None]
